FAERS Safety Report 5629385-5 (Version None)
Quarter: 2008Q1

REPORT INFORMATION
  Report Type: 
  Country: None (occurrence: None)
  Receive Date: 20080218
  Receipt Date: 20080213
  Transmission Date: 20080703
  Serious: Yes (Other)
  Sender: FDA-Public Use
  Company Number: B0507612A

PATIENT
  Age: 17 Year
  Sex: Male

DRUGS (1)
  1. RELENZA [Suspect]
     Indication: INFLUENZA
     Dosage: 5MG PER DAY
     Route: 055
     Dates: start: 20080205, end: 20080205

REACTIONS (4)
  - FALL [None]
  - GAIT DISTURBANCE [None]
  - PALLOR [None]
  - SYNCOPE [None]
